FAERS Safety Report 15437777 (Version 1)
Quarter: 2018Q3

REPORT INFORMATION
  Report Type: Report from Study
  Country: None (occurrence: CH)
  Receive Date: 20180927
  Receipt Date: 20180927
  Transmission Date: 20181010
  Serious: Yes (Hospitalization)
  Sender: FDA-Public Use
  Company Number: CH-ABBVIE-18S-151-2496532-00

PATIENT
  Age: 73 Year
  Sex: Male

DRUGS (3)
  1. DUODOPA [Suspect]
     Active Substance: CARBIDOPA\LEVODOPA
     Indication: PARKINSON^S DISEASE
     Route: 050
     Dates: start: 20170320, end: 20170607
  2. DUODOPA [Suspect]
     Active Substance: CARBIDOPA\LEVODOPA
     Dosage: MORNING DOSE 8ML; CONTINUOUS RATE?DAY 5.2ML/H; EXTRA DOSE 1.5ML/H; 16H THERAPY
     Route: 050
     Dates: start: 20170607, end: 20180206
  3. DUODOPA [Suspect]
     Active Substance: CARBIDOPA\LEVODOPA
     Dosage: MORNING DOSE 8ML; CONTINUOUS RATE?DAY 5.1ML/H; EXTRA DOSE 1.5ML/H; 16H THERAPY
     Route: 050
     Dates: start: 20180206

REACTIONS (2)
  - Device issue [Recovered/Resolved]
  - Vertigo [Unknown]

NARRATIVE: CASE EVENT DATE: 201809
